FAERS Safety Report 5163793-4 (Version None)
Quarter: 2006Q4

REPORT INFORMATION
  Report Type: 
  Country: None (occurrence: None)
  Receive Date: 20061124
  Receipt Date: 20061117
  Transmission Date: 20070319
  Serious: Yes (Other)
  Sender: FDA-Public Use
  Company Number: 2006142896

PATIENT
  Age: 31 Year
  Sex: Female
  Weight: 68.0396 kg

DRUGS (2)
  1. ZOLOFT [Suspect]
     Indication: PANIC ATTACK
     Dosage: 50 MG (50 MG,1 IN 1 D)
     Dates: end: 20060901
  2. SERTRALINE [Suspect]
     Indication: ANXIETY

REACTIONS (6)
  - DIZZINESS [None]
  - FEELING ABNORMAL [None]
  - HEART RATE INCREASED [None]
  - IMPAIRED DRIVING ABILITY [None]
  - UNEVALUABLE EVENT [None]
  - VOMITING [None]
